FAERS Safety Report 7157141-8 (Version None)
Quarter: 2010Q4

REPORT INFORMATION
  Report Type: 
  Country: None (occurrence: None)
  Receive Date: 20101214
  Receipt Date: 20100104
  Transmission Date: 20110411
  Serious: No
  Sender: FDA-Public Use
  Company Number: US-ASTRAZENECA-2010SE00123

PATIENT
  Age: 65 Year
  Sex: Female
  Weight: 74.8 kg

DRUGS (13)
  1. CRESTOR [Suspect]
     Indication: BLOOD CHOLESTEROL INCREASED
     Route: 048
     Dates: start: 20091201, end: 20100103
  2. PREDNISONE [Suspect]
     Route: 048
  3. PREDNISONE [Suspect]
     Route: 048
  4. LIPITOR [Suspect]
     Indication: BLOOD CHOLESTEROL INCREASED
     Route: 048
     Dates: end: 20090701
  5. LIPITOR [Suspect]
     Route: 048
     Dates: end: 20090701
  6. CO-Q-10 [Concomitant]
     Indication: MYALGIA
  7. SYNTHROID [Concomitant]
  8. FOLBIC [Concomitant]
     Indication: HYPERTENSION
  9. HYDROCHLOROTHIAZIDE [Concomitant]
     Indication: HYPERTENSION
  10. DIOVAN [Concomitant]
     Indication: HYPERTENSION
  11. ASPIRIN [Concomitant]
  12. VITAMIN D [Concomitant]
     Indication: MEDICAL DIET
     Dosage: 2000 UNITS DAILY
  13. CALCIUM [Concomitant]
     Indication: MEDICAL DIET
     Dosage: 1200 UNITS DAILY

REACTIONS (5)
  - ATRIAL FIBRILLATION [None]
  - INSOMNIA [None]
  - MYALGIA [None]
  - POLYMYALGIA RHEUMATICA [None]
  - WEIGHT INCREASED [None]
